FAERS Safety Report 4931921-9 (Version None)
Quarter: 2006Q1

REPORT INFORMATION
  Report Type: 
  Country: None (occurrence: None)
  Receive Date: 20060303
  Receipt Date: 20050810
  Transmission Date: 20060701
  Serious: Yes (Hospitalization, Other)
  Sender: FDA-Public Use
  Company Number: US-MERCK-0508USA01994

PATIENT
  Age: 55 Year
  Sex: Male
  Weight: 114 kg

DRUGS (14)
  1. VIOXX [Suspect]
     Indication: NECK PAIN
     Route: 048
     Dates: start: 19990101, end: 20020701
  2. VIOXX [Suspect]
     Route: 048
     Dates: start: 19990101, end: 20020701
  3. VIOXX [Suspect]
     Indication: BACK PAIN
     Route: 048
     Dates: start: 19990101, end: 20020701
  4. VIOXX [Suspect]
     Route: 048
     Dates: start: 19990101, end: 20020701
  5. BEXTRA [Concomitant]
     Route: 065
  6. BECONASE [Concomitant]
     Route: 065
  7. LISINOPRIL [Concomitant]
     Route: 065
  8. ATENOLOL [Concomitant]
     Route: 065
  9. COZAAR [Concomitant]
     Route: 065
  10. PLAVIX [Concomitant]
     Route: 065
  11. ZOCOR [Concomitant]
     Route: 065
  12. NIFEDIPINE [Concomitant]
     Route: 065
  13. ASPIRIN [Concomitant]
     Route: 065
  14. TOLINASE [Concomitant]
     Route: 065

REACTIONS (4)
  - ANGINA PECTORIS [None]
  - CORONARY ARTERY DISEASE [None]
  - CORONARY ARTERY RESTENOSIS [None]
  - CORONARY ARTERY THROMBOSIS [None]
